FAERS Safety Report 25646024 (Version 1)
Quarter: 2025Q3

REPORT INFORMATION
  Report Type: Spontaneous
  Country: JP (occurrence: JP)
  Receive Date: 20250805
  Receipt Date: 20250805
  Transmission Date: 20251021
  Serious: Yes (Other)
  Sender: ALEXION PHARMACEUTICALS
  Company Number: JP-ASTRAZENECA-202507JPN026793JP

PATIENT
  Age: 82 Year
  Sex: Female

DRUGS (2)
  1. LYNPARZA [Suspect]
     Active Substance: OLAPARIB
     Indication: Endometrial adenocarcinoma
     Route: 065
  2. LYNPARZA [Suspect]
     Active Substance: OLAPARIB
     Indication: Adenocarcinoma

REACTIONS (5)
  - Nephrogenic anaemia [Not Recovered/Not Resolved]
  - Pancytopenia [Unknown]
  - Renal impairment [Unknown]
  - Myelodysplastic syndrome [Unknown]
  - Blood creatinine increased [Not Recovered/Not Resolved]
